FAERS Safety Report 9816888 (Version 1)
Quarter: 2014Q1

REPORT INFORMATION
  Report Type: Spontaneous
  Country: US (occurrence: US)
  Receive Date: 20140114
  Receipt Date: 20140114
  Transmission Date: 20141002
  Serious: No
  Sender: FDA-Public Use
  Company Number: US-BAUSCH-BL-2013-006749

PATIENT
  Age: 66 Year
  Sex: Female
  Weight: 71.73 kg

DRUGS (3)
  1. LOTEMAX (LOTEPREDNOL ETABONATE OPHTHALMIC GEL 0.5%) [Suspect]
     Indication: DRY EYE
     Dosage: 1 TO 2 DROPS; 2 TO 3 TIMES DAILY; OPHTHALMIC
     Route: 047
     Dates: start: 20131107, end: 20131118
  2. AMLODIPINE [Concomitant]
     Indication: HYPERTENSION
  3. CALCIUM [Concomitant]

REACTIONS (3)
  - Off label use [Recovered/Resolved]
  - Eye pain [Recovered/Resolved]
  - Headache [Recovering/Resolving]
